FAERS Safety Report 21002039 (Version 1)
Quarter: 2022Q2

REPORT INFORMATION
  Report Type: Report from Study
  Country: NO (occurrence: None)
  Receive Date: 20220624
  Receipt Date: 20220624
  Transmission Date: 20220721
  Serious: Yes (Hospitalization)
  Sender: FDA-Public Use
  Company Number: NO-ROCHE-3121145

PATIENT
  Age: 85 Year
  Sex: Female

DRUGS (18)
  1. RITUXIMAB [Suspect]
     Active Substance: RITUXIMAB
     Indication: Diffuse large B-cell lymphoma
     Route: 065
     Dates: start: 20220218, end: 20220610
  2. POLATUZUMAB VEDOTIN [Suspect]
     Active Substance: POLATUZUMAB VEDOTIN
     Indication: Diffuse large B-cell lymphoma
     Route: 042
     Dates: start: 20220218, end: 20220610
  3. CYCLOPHOSPHAMIDE [Suspect]
     Active Substance: CYCLOPHOSPHAMIDE
     Indication: Diffuse large B-cell lymphoma
     Route: 065
     Dates: start: 20220218, end: 20220610
  4. DOXORUBICIN [Suspect]
     Active Substance: DOXORUBICIN
     Indication: Diffuse large B-cell lymphoma
     Route: 065
     Dates: start: 20220218, end: 20220610
  5. PREDNISONE [Suspect]
     Active Substance: PREDNISONE
     Indication: Diffuse large B-cell lymphoma
     Route: 049
     Dates: start: 20220218, end: 20220610
  6. FRAGMIN [Concomitant]
     Active Substance: DALTEPARIN SODIUM
     Indication: Embolism
     Dosage: 5000 E X 2
     Dates: start: 20220218, end: 20220613
  7. HYDROCHLOROTHIAZIDE [Concomitant]
     Active Substance: HYDROCHLOROTHIAZIDE
     Indication: Hypertension
     Dates: start: 20220221, end: 20220511
  8. DAPSONE [Concomitant]
     Active Substance: DAPSONE
     Indication: Pneumonia
     Dates: start: 20220218, end: 20220519
  9. VALACYCLOVIR HYDROCHLORIDE [Concomitant]
     Active Substance: VALACYCLOVIR HYDROCHLORIDE
     Dosage: 500 X 2
     Dates: start: 20220218
  10. PANTOPRAZOLE SODIUM [Concomitant]
     Active Substance: PANTOPRAZOLE SODIUM
     Dates: start: 20220218
  11. CETIRIZINE HYDROCHLORIDE [Concomitant]
     Active Substance: CETIRIZINE HYDROCHLORIDE
     Dosage: CITRIZIN 10MG 1
     Dates: start: 20220218
  12. ACETAMINOPHEN [Concomitant]
     Active Substance: ACETAMINOPHEN
     Dosage: 1G X 1
     Dates: start: 20220218
  13. ONDANSETRON [Concomitant]
     Active Substance: ONDANSETRON
     Indication: Nausea
     Dosage: 8MG X1
     Dates: start: 20220218
  14. MOUTH WASH [Concomitant]
     Indication: Dry mouth
     Dates: start: 20220218
  15. MOUTH WASH [Concomitant]
     Indication: Ulcer
  16. LACTOSE [Concomitant]
     Active Substance: LACTOSE
     Indication: Constipation
     Dosage: 10ML X 3 AS NEEDED
     Dates: start: 20220218
  17. METOPROLOL [Concomitant]
     Active Substance: METOPROLOL
     Indication: Nausea
     Dates: start: 20220511
  18. ELIQUIS [Concomitant]
     Active Substance: APIXABAN
     Indication: Embolism
     Dosage: 2.5MG X 2
     Dates: start: 20220516

REACTIONS (1)
  - Atrioventricular block [Unknown]

NARRATIVE: CASE EVENT DATE: 20220611
